FAERS Safety Report 5268468-9 (Version None)
Quarter: 2007Q1

REPORT INFORMATION
  Report Type: 
  Country: None (occurrence: None)
  Receive Date: 20061213
  Receipt Date: 20040929
  Transmission Date: 20070707
  Serious: No
  Sender: FDA-Public Use
  Company Number: 2004UW20542

PATIENT
  Age: 34 Year
  Sex: Female

DRUGS (3)
  1. IRESSA [Suspect]
     Indication: NON-SMALL CELL LUNG CANCER
  2. ANTIEMETICS [Concomitant]
  3. PAIN MEDICATION [Concomitant]

REACTIONS (1)
  - DISEASE PROGRESSION [None]
